FAERS Safety Report 8829490 (Version 1)
Quarter: 2012Q4

REPORT INFORMATION
  Report Type: 
  Country: US (occurrence: US)
  Receive Date: 20121008
  Receipt Date: 20121008
  Transmission Date: 20130627
  Serious: No
  Sender: FDA-Public Use
  Company Number: US-TEVA-338337USA

PATIENT
  Sex: Female

DRUGS (4)
  1. QVAR [Suspect]
     Indication: EMPHYSEMA
  2. QVAR [Suspect]
     Indication: CHRONIC OBSTRUCTIVE PULMONARY DISEASE
  3. ALBUTEROL SULFATE [Suspect]
     Indication: EMPHYSEMA
  4. ALBUTEROL SULFATE [Suspect]
     Indication: CHRONIC OBSTRUCTIVE PULMONARY DISEASE

REACTIONS (1)
  - Drug ineffective [Unknown]
